FAERS Safety Report 6716947-7 (Version None)
Quarter: 2010Q2

REPORT INFORMATION
  Report Type: 
  Country: None (occurrence: None)
  Receive Date: 20100510
  Receipt Date: 20100429
  Transmission Date: 20101027
  Serious: No
  Sender: FDA-Public Use
  Company Number: US-JNJFOC-20100500288

PATIENT
  Sex: Female
  Weight: 72.58 kg

DRUGS (5)
  1. UNSPECIFIED SANDOZ FENTANYL TRANSDERMAL SYSTEM [Suspect]
     Indication: PAIN
  2. UNSPECIFIED SANDOZ FENTANYL TRANSDERMAL SYSTEM [Suspect]
  3. FENTANYL CITRATE [Suspect]
     Indication: PAIN
     Route: 062
     Dates: start: 20100401
  4. NORCO [Concomitant]
     Indication: PAIN
     Dosage: 1-2 EVERY 4 HOURS AS NEEDED
     Route: 048
  5. MANY OTHER UNSPECIFIED MEDICATIONS [Concomitant]
     Indication: DRUG USE FOR UNKNOWN INDICATION

REACTIONS (2)
  - INCORRECT DRUG ADMINISTRATION DURATION [None]
  - NERVOUSNESS [None]
